FAERS Safety Report 20162190 (Version 1)
Quarter: 2021Q4

REPORT INFORMATION
  Report Type: Spontaneous
  Country: DE (occurrence: DE)
  Receive Date: 20211208
  Receipt Date: 20211208
  Transmission Date: 20220303
  Serious: Yes (Death, Other)
  Sender: FDA-Public Use
  Company Number: None

PATIENT
  Age: 40 Year
  Sex: Male

DRUGS (2)
  1. ENOXAPARIN SODIUM [Interacting]
     Active Substance: ENOXAPARIN SODIUM
     Dosage: UNK
  2. COMIRNATY [Suspect]
     Active Substance: TOZINAMERAN
     Indication: Immunisation
     Dosage: 3 DF; BOOSTER VACCINATION
     Dates: start: 20211118

REACTIONS (3)
  - Circulatory collapse [Fatal]
  - Pulmonary embolism [Fatal]
  - Drug interaction [Unknown]

NARRATIVE: CASE EVENT DATE: 20211120
